FAERS Safety Report 9237412 (Version 3)
Quarter: 2013Q2

REPORT INFORMATION
  Report Type: Spontaneous
  Country: US (occurrence: US)
  Receive Date: 20130417
  Receipt Date: 20130626
  Transmission Date: 20140414
  Serious: Yes (Other)
  Sender: FDA-Public Use
  Company Number: US-PFIZER INC-2013116702

PATIENT
  Age: 67 Year
  Sex: Female
  Weight: 65.76 kg

DRUGS (15)
  1. XELJANZ [Suspect]
     Indication: RHEUMATOID ARTHRITIS
     Dosage: 5 MG, TWICE A DAY
     Route: 048
     Dates: start: 20130322
  2. NEXIUM [Concomitant]
     Dosage: 20 MG, UNK
     Route: 048
  3. SYNTHROID [Concomitant]
     Dosage: 25 UG, UNK
     Route: 048
  4. ZETIA [Concomitant]
     Dosage: 10 MG, UNK
     Route: 048
  5. HYZAAR [Concomitant]
     Dosage: 100-125, UNK
     Route: 048
  6. METHOTREXATE [Concomitant]
     Dosage: 2.5 MG, UNK
     Route: 048
  7. VITAMIN D [Concomitant]
     Dosage: 2000 UNIT, UNK
     Route: 048
  8. VITAMIN B12 [Concomitant]
     Dosage: 100 UG, UNK
     Route: 048
  9. IBUPROFEN [Concomitant]
     Dosage: 200 MG, UNK
     Route: 048
  10. ASPIR-81 [Concomitant]
     Dosage: 81 MG, UNK
     Route: 048
  11. POTASSIUM [Concomitant]
     Dosage: 75 MG, UNK
     Route: 048
  12. RESTASIS [Concomitant]
     Dosage: EUM 0.05 %, UNK
     Route: 047
  13. FLORASTOR [Concomitant]
     Dosage: 250 MG, UNK
     Route: 048
  14. PROTAMINE SULFATE [Concomitant]
     Dosage: SOL 10 MG/ML, UNK
     Route: 048
  15. FENOGLIDE [Concomitant]
     Dosage: 120 MG, UNK
     Route: 048

REACTIONS (3)
  - Urinary tract infection [Unknown]
  - Headache [Recovered/Resolved]
  - Fatigue [Unknown]
